FAERS Safety Report 8170507-2 (Version None)
Quarter: 2012Q1

REPORT INFORMATION
  Report Type: 
  Country: None (occurrence: None)
  Receive Date: 20120228
  Receipt Date: 20120223
  Transmission Date: 20120608
  Serious: Yes (Death, Other)
  Sender: FDA-Public Use
  Company Number: FR-ROXANE LABORATORIES, INC.-2012-RO-00702RO

PATIENT
  Age: 83 Year

DRUGS (3)
  1. METHOTREXATE [Suspect]
     Indication: PEMPHIGOID
  2. SUPERPOTENT TOPICAL STEROID [Concomitant]
     Indication: PEMPHIGOID
     Route: 061
  3. FOLIC ACID [Suspect]
     Indication: VITAMIN SUPPLEMENTATION

REACTIONS (3)
  - RESPIRATORY TRACT INFECTION [None]
  - LEUKOPENIA [None]
  - THROMBOCYTOPENIA [None]
